FAERS Safety Report 10226646 (Version 1)
Quarter: 2014Q2

REPORT INFORMATION
  Report Type: Spontaneous
  Country: DE (occurrence: DE)
  Receive Date: 20140609
  Receipt Date: 20140609
  Transmission Date: 20141212
  Serious: Yes (Hospitalization)
  Sender: FDA-Public Use
  Company Number: PHHY2014DE068421

PATIENT
  Age: 23 Year
  Sex: Male
  Weight: 76.4 kg

DRUGS (5)
  1. LEPONEX [Suspect]
     Indication: PSYCHOTIC DISORDER
     Dosage: 150 MG, UNK
     Dates: start: 20140429, end: 20140512
  2. QUETIAPIN [Concomitant]
     Indication: AFFECTIVE DISORDER
     Dosage: 900 MG, DAILY
     Route: 048
     Dates: start: 20131130
  3. SERTRALIN [Concomitant]
     Indication: AFFECTIVE DISORDER
     Dosage: 150 MG, UNK
     Route: 048
     Dates: start: 20131108
  4. TRAZOLAN [Concomitant]
     Indication: SLEEP DISORDER
     Dosage: 50 MG, UNK
     Route: 048
     Dates: start: 20140131
  5. CLEXAN [Concomitant]
     Indication: THROMBOSIS PROPHYLAXIS
     Dosage: 0.4 ML, UNK
     Route: 058
     Dates: start: 20140508

REACTIONS (5)
  - General physical health deterioration [Recovering/Resolving]
  - Nausea [Recovering/Resolving]
  - Pyrexia [Recovering/Resolving]
  - Vomiting [Recovering/Resolving]
  - Sinus tachycardia [Recovering/Resolving]
